FAERS Safety Report 5750979-0 (Version None)
Quarter: 2008Q2

REPORT INFORMATION
  Report Type: 
  Country: None (occurrence: None)
  Receive Date: 20080528
  Receipt Date: 20080522
  Transmission Date: 20081010
  Serious: Yes (Disabling)
  Sender: FDA-Public Use
  Company Number: AU-ASTRAZENECA-2008AP03928

PATIENT
  Age: 59 Year
  Sex: Male

DRUGS (3)
  1. CRESTOR [Suspect]
     Route: 048
     Dates: start: 20080115
  2. CALTRATE [Concomitant]
  3. VITAMIN D [Concomitant]

REACTIONS (2)
  - MUSCULAR WEAKNESS [None]
  - PERONEAL NERVE PALSY [None]
